FAERS Safety Report 7145330-8 (Version None)
Quarter: 2010Q4

REPORT INFORMATION
  Report Type: 
  Country: None (occurrence: None)
  Receive Date: 20101208
  Receipt Date: 20101201
  Transmission Date: 20110411
  Serious: Yes (Hospitalization, Other)
  Sender: FDA-Public Use
  Company Number: BR-ABBOTT-10P-020-0689307-00

PATIENT
  Sex: Male
  Weight: 80 kg

DRUGS (2)
  1. HUMIRA [Suspect]
     Indication: PSORIATIC ARTHROPATHY
     Route: 058
     Dates: start: 20100301, end: 20100801
  2. HUMIRA [Suspect]
     Dates: start: 20101001

REACTIONS (4)
  - GALLBLADDER DISORDER [None]
  - HYPERTENSION [None]
  - SURGERY [None]
  - URINARY TRACT INFECTION [None]
